FAERS Safety Report 8731812 (Version 2)
Quarter: 2012Q4

REPORT INFORMATION
  Report Type: 
  Country: FR (occurrence: FR)
  Receive Date: 20120820
  Receipt Date: 20121022
  Transmission Date: 20130627
  Serious: Yes (Congenital Anomaly)
  Sender: FDA-Public Use
  Company Number: FR-BAYER-2012-083780

PATIENT
  Age: 14 Day
  Sex: Male

DRUGS (1)
  1. MIRENA [Suspect]
     Dosage: 20 ?g, CONT
     Route: 064

REACTIONS (1)
  - Talipes [Not Recovered/Not Resolved]
